FAERS Safety Report 18816498 (Version 1)
Quarter: 2021Q1

REPORT INFORMATION
  Report Type: Spontaneous
  Country: US (occurrence: US)
  Receive Date: 20210130
  Receipt Date: 20210130
  Transmission Date: 20210419
  Serious: Yes (Hospitalization)
  Sender: FDA-Public Use
  Company Number: None

PATIENT
  Age: 60 Year
  Sex: Male
  Weight: 61 kg

DRUGS (1)
  1. ATORVASTATIN (ATORVASTATIN CA 80MG TAB) [Suspect]
     Active Substance: ATORVASTATIN
     Indication: CEREBROVASCULAR ACCIDENT PROPHYLAXIS
     Route: 048
     Dates: start: 20190812, end: 20200703

REACTIONS (10)
  - Liver injury [None]
  - Culture positive [None]
  - Asthenia [None]
  - Fall [None]
  - Myalgia [None]
  - Staphylococcal bacteraemia [None]
  - Hepatic enzyme increased [None]
  - Neutropenia [None]
  - Rhabdomyolysis [None]
  - Myelosuppression [None]

NARRATIVE: CASE EVENT DATE: 20200703
